FAERS Safety Report 5473112-1 (Version None)
Quarter: 2007Q3

REPORT INFORMATION
  Report Type: 
  Country: None (occurrence: None)
  Receive Date: 20070926
  Receipt Date: 20070917
  Transmission Date: 20080115
  Serious: Yes (Death)
  Sender: FDA-Public Use
  Company Number: B0488281A

PATIENT
  Age: 77 Year
  Sex: Female

DRUGS (2)
  1. PAROXETINE HCL [Suspect]
  2. ETHANOL (FORMULATION UNKNOWN) (ALCOHOL) [Suspect]

REACTIONS (4)
  - COMPLETED SUICIDE [None]
  - DRUG LEVEL ABOVE THERAPEUTIC [None]
  - FALL [None]
  - OVERDOSE [None]
